FAERS Safety Report 4300154-1 (Version None)
Quarter: 2004Q1

REPORT INFORMATION
  Report Type: 
  Country: None (occurrence: None)
  Receive Date: 20040218
  Receipt Date: 20040202
  Transmission Date: 20041129
  Serious: Yes (Hospitalization)
  Sender: FDA-Public Use
  Company Number: DSA_23978_2004

PATIENT
  Age: 50 Year
  Sex: Male

DRUGS (6)
  1. DILTIAZEM [Suspect]
     Dosage: 300 MG Q DAY PO
     Route: 048
     Dates: start: 20030319, end: 20030323
  2. DI-ANTALVIC [Suspect]
     Dosage: 430 MG Q DAY PO
     Route: 048
  3. MODURETIC 5-50 [Suspect]
     Dosage: 1 U Q DAY PO
     Route: 048
     Dates: start: 20000101, end: 20030314
  4. AUGMENTIN [Suspect]
     Dosage: 3 G Q DAY UNK
     Dates: start: 20030315, end: 20030317
  5. ALFENTANIL [Suspect]
     Dosage: 0.5 MG Q DAY UNK
     Dates: start: 20030318
  6. CEFAMANDOLE NAFATE [Suspect]
     Dates: start: 20030315, end: 20030317

REACTIONS (1)
  - EXANTHEM [None]
